FAERS Safety Report 5794066-4 (Version None)
Quarter: 2008Q2

REPORT INFORMATION
  Report Type: 
  Country: None (occurrence: None)
  Receive Date: 20080627
  Receipt Date: 20080620
  Transmission Date: 20081010
  Serious: Yes (Death)
  Sender: FDA-Public Use
  Company Number: JP-ABBOTT-08P-087-0459310-00

PATIENT
  Age: 86 Year
  Sex: Male

DRUGS (1)
  1. LEUPLIN SR FOR INJECTION KIT 11.25 MG [Suspect]
     Indication: PROSTATE CANCER STAGE IV
     Route: 058
     Dates: start: 20060905, end: 20070220

REACTIONS (2)
  - GENERAL PHYSICAL HEALTH DETERIORATION [None]
  - PROSTATE CANCER [None]
